FAERS Safety Report 12488084 (Version 2)
Quarter: 2016Q4

REPORT INFORMATION
  Report Type: Spontaneous
  Country: FR (occurrence: FR)
  Receive Date: 20160622
  Receipt Date: 20161213
  Transmission Date: 20170207
  Serious: Yes (Other)
  Sender: FDA-Public Use
  Company Number: FR-BRISTOL-MYERS SQUIBB COMPANY-BMS-2016-048768

PATIENT
  Sex: Male
  Weight: 90 kg

DRUGS (2)
  1. ASPIRIN                            /00002701/ [Concomitant]
     Active Substance: ASPIRIN
     Indication: PRODUCT USED FOR UNKNOWN INDICATION
     Route: 065
  2. ELIQUIS [Suspect]
     Active Substance: APIXABAN
     Indication: CEREBROVASCULAR ACCIDENT PROPHYLAXIS
     Dosage: 5 MG, BID
     Route: 065
     Dates: start: 201601

REACTIONS (6)
  - Anaemia [Unknown]
  - Duodenal ulcer [Unknown]
  - Gastric haemorrhage [Recovered/Resolved]
  - Gastritis [Unknown]
  - Helicobacter infection [Unknown]
  - Off label use [Unknown]

NARRATIVE: CASE EVENT DATE: 201605
